FAERS Safety Report 22181351 (Version 4)
Quarter: 2024Q4

REPORT INFORMATION
  Report Type: Spontaneous
  Country: US (occurrence: US)
  Receive Date: 20230406
  Receipt Date: 20241127
  Transmission Date: 20250115
  Serious: No
  Sender: PFIZER
  Company Number: US-PFIZER INC-PV202300062807

PATIENT
  Age: 51 Year

DRUGS (2)
  1. PREMARIN [Suspect]
     Active Substance: ESTROGENS, CONJUGATED
     Dosage: ONCE A WEEK. INSERT 0.5 GRAMS OF PREMARIN CREAM VAGINALLY AT BEDTIME X 2
     Route: 067
  2. PREMARIN [Suspect]
     Active Substance: ESTROGENS, CONJUGATED
     Dosage: TRANSITION TO 0.5 GRAMS 1 TO 2 X PER WEEK AS NEEDED
     Route: 067

REACTIONS (4)
  - COVID-19 [Unknown]
  - Irritability [Unknown]
  - Weight increased [Unknown]
  - Off label use [Unknown]
